FAERS Safety Report 14167480 (Version 2)
Quarter: 2017Q4

REPORT INFORMATION
  Report Type: Spontaneous
  Country: BR (occurrence: BR)
  Receive Date: 20171108
  Receipt Date: 20171223
  Transmission Date: 20180321
  Serious: Yes (Other)
  Sender: FDA-Public Use
  Company Number: BR-AMGEN-BRASP2017149769

PATIENT
  Age: 49 Year
  Sex: Male

DRUGS (5)
  1. ENDOFOLIN [Concomitant]
     Active Substance: FOLIC ACID
     Dosage: UNK
  2. ENBREL [Suspect]
     Active Substance: ETANERCEPT
     Indication: ANKYLOSING SPONDYLITIS
     Dosage: 50 MG, 1X/WEEK
     Route: 065
     Dates: start: 20170630, end: 20170922
  3. REMICADE [Suspect]
     Active Substance: INFLIXIMAB
     Indication: ANKYLOSING SPONDYLITIS
     Dosage: 100 MG, EVERY 8 WEEKS
     Route: 065
     Dates: end: 201704
  4. TECNOMET [Concomitant]
     Active Substance: METHOTREXATE
     Dosage: UNK
  5. AMYTRIL [Concomitant]
     Active Substance: AMITRIPTYLINE HYDROCHLORIDE
     Dosage: UNK, 1X/DAY

REACTIONS (1)
  - Lung disorder [Recovered/Resolved]

NARRATIVE: CASE EVENT DATE: 201709
